FAERS Safety Report 5871308-8 (Version None)
Quarter: 2008Q3

REPORT INFORMATION
  Report Type: 
  Country: None (occurrence: None)
  Receive Date: 20080905
  Receipt Date: 20080827
  Transmission Date: 20090109
  Serious: Yes (Other)
  Sender: FDA-Public Use
  Company Number: CA-JNJFOC-20080307058

PATIENT
  Sex: Female

DRUGS (1)
  1. REMICADE [Suspect]
     Indication: COLITIS ULCERATIVE
     Dosage: TOTAL # DOSES: 3
     Route: 042

REACTIONS (3)
  - DRUG INEFFECTIVE [None]
  - REFUSAL OF TREATMENT BY PATIENT [None]
  - SURGERY [None]
